FAERS Safety Report 5428504-3 (Version None)
Quarter: 2007Q3

REPORT INFORMATION
  Report Type: 
  Country: None (occurrence: None)
  Receive Date: 20070731
  Receipt Date: 20070427
  Transmission Date: 20080115
  Serious: No
  Sender: FDA-Public Use
  Company Number: US200704006598

PATIENT
  Sex: Female

DRUGS (1)
  1. BYETTA [Suspect]
     Dosage: 10 UG,

REACTIONS (3)
  - DECREASED APPETITE [None]
  - FEELING ABNORMAL [None]
  - INJECTION SITE PAIN [None]
